FAERS Safety Report 9100362 (Version 2)
Quarter: 2013Q2

REPORT INFORMATION
  Report Type: Spontaneous
  Country: US (occurrence: US)
  Receive Date: 20130214
  Receipt Date: 20130411
  Transmission Date: 20140414
  Serious: Yes (Other)
  Sender: FDA-Public Use
  Company Number: US-PFIZER INC-2013056564

PATIENT
  Age: 63 Year
  Sex: Male
  Weight: 92 kg

DRUGS (11)
  1. INLYTA [Suspect]
     Indication: RENAL CELL CARCINOMA
     Dosage: 3 MG, 2X/DAY
     Route: 048
     Dates: start: 20120225
  2. INLYTA [Suspect]
     Dosage: 5 MG, 2X/DAY
     Route: 048
     Dates: start: 20120308, end: 20120528
  3. INLYTA [Suspect]
     Dosage: 3 MG, 2X/DAY
     Dates: start: 20120609
  4. LIPITOR [Concomitant]
     Dosage: 20 MG, 1X/DAY
     Route: 048
     Dates: start: 20090903
  5. LISINOPRIL [Concomitant]
     Dosage: 5 MG, 1X/DAY
     Route: 048
     Dates: start: 20090903
  6. LISINOPRIL [Concomitant]
     Dosage: 20 MG, 1X/DAY
     Dates: start: 201210, end: 201210
  7. METOPROLOL XL [Concomitant]
     Dosage: 25 MG, 1X/DAY
     Route: 048
     Dates: start: 20090903
  8. COUMADIN [Concomitant]
     Dosage: 2.5 MG, 1X/DAY
     Route: 048
     Dates: start: 20090903
  9. ASPIRIN [Concomitant]
     Dosage: 81 MG, 1X/DAY
     Route: 048
     Dates: start: 20090905
  10. ESOMEPRAZOLE [Concomitant]
     Indication: GASTROOESOPHAGEAL REFLUX DISEASE
     Dosage: 20 MG, 1X/DAY
     Route: 048
     Dates: start: 20090905
  11. SYNTHROID [Concomitant]
     Dosage: 50 UG, 1X/DAY
     Route: 048
     Dates: start: 20090905

REACTIONS (19)
  - Haemorrhoidal haemorrhage [Unknown]
  - Subdural haematoma [Unknown]
  - Diarrhoea [Recovered/Resolved with Sequelae]
  - Fatigue [Unknown]
  - Cheilitis [Recovering/Resolving]
  - Burning sensation [Unknown]
  - Muscle spasms [Unknown]
  - Transaminases increased [Unknown]
  - Asthenia [Unknown]
  - Decreased appetite [Unknown]
  - Pyrexia [Recovered/Resolved]
  - Headache [Unknown]
  - Nausea [Unknown]
  - Vomiting [Unknown]
  - Vocal cord paralysis [Recovered/Resolved]
  - Hypertension [Recovered/Resolved]
  - Paraesthesia [Recovered/Resolved]
  - Arthralgia [Unknown]
  - Cough [Unknown]
